FAERS Safety Report 7930125-5 (Version None)
Quarter: 2011Q4

REPORT INFORMATION
  Report Type: 
  Country: None (occurrence: None)
  Receive Date: 20111121
  Receipt Date: 20111118
  Transmission Date: 20120403
  Serious: Yes (Life-Threatening, Hospitalization, Other)
  Sender: FDA-Public Use
  Company Number: JP-PFIZER INC-2010011365

PATIENT
  Age: 70 Year
  Sex: Male

DRUGS (10)
  1. KREMEZIN [Concomitant]
     Dosage: UNK
     Route: 048
  2. MAGNESIUM OXIDE [Concomitant]
     Dosage: UNK
     Route: 048
  3. LOSARTAN POTASSIUM [Concomitant]
     Dosage: UNK
     Route: 048
  4. RABEPRAZOLE SODIUM [Concomitant]
     Dosage: UNK
     Route: 048
  5. PERSANTIN [Concomitant]
     Dosage: UNK
     Route: 048
  6. AMLODIPINE [Concomitant]
     Dosage: UNK
     Route: 048
  7. SUNITINIB MALATE [Suspect]
     Indication: RENAL CANCER
     Dosage: 50 MG, 1X/DAY, 28-DAY ADMINISTRATION AND 14-DAY CESSATION
     Route: 048
     Dates: start: 20091215, end: 20100101
  8. SUNITINIB MALATE [Suspect]
     Dosage: 37.5 MG/DAY
     Route: 048
     Dates: start: 20100101, end: 20110501
  9. GASLON [Concomitant]
     Dosage: UNK
     Route: 048
  10. AMARYL [Concomitant]
     Dosage: UNK
     Route: 048

REACTIONS (11)
  - FACE OEDEMA [None]
  - THROMBOCYTOPENIA [None]
  - ALANINE AMINOTRANSFERASE INCREASED [None]
  - BLOOD UREA INCREASED [None]
  - OEDEMA PERIPHERAL [None]
  - HYPOTHYROIDISM [None]
  - ASPARTATE AMINOTRANSFERASE INCREASED [None]
  - MALAISE [None]
  - PALMAR-PLANTAR ERYTHRODYSAESTHESIA SYNDROME [None]
  - GAMMA-GLUTAMYLTRANSFERASE INCREASED [None]
  - BLOOD CREATININE INCREASED [None]
